FAERS Safety Report 5299021-9 (Version None)
Quarter: 2007Q2

REPORT INFORMATION
  Report Type: 
  Country: None (occurrence: None)
  Receive Date: 20070412
  Receipt Date: 20070412
  Transmission Date: 20071010
  Serious: Yes (Hospitalization)
  Sender: FDA-Public Use
  Company Number: None

PATIENT
  Sex: Male
  Weight: 94.8018 kg

DRUGS (8)
  1. REVLIMID [Suspect]
     Indication: MULTIPLE MYELOMA
     Dosage: 15MG DAILY 21D/28D PO
     Route: 048
  2. ZOFRAN [Concomitant]
  3. MORPHINE [Concomitant]
  4. LACTULOSE [Concomitant]
  5. PRILOSEC [Concomitant]
  6. NEURONTIN [Concomitant]
  7. LEVOTHROID [Concomitant]
  8. COLACE [Concomitant]

REACTIONS (4)
  - CATARACT OPERATION [None]
  - CONSTIPATION [None]
  - NAUSEA [None]
  - VOMITING [None]
